FAERS Safety Report 19380603 (Version 1)
Quarter: 2021Q2

REPORT INFORMATION
  Report Type: Spontaneous
  Country: US (occurrence: US)
  Receive Date: 20210607
  Receipt Date: 20210607
  Transmission Date: 20210717
  Serious: Yes (Hospitalization, Disabling)
  Sender: FDA-Public Use
  Company Number: None

PATIENT
  Age: 58 Year
  Sex: Male

DRUGS (8)
  1. TEMOZOLOMIDE 20MG [Suspect]
     Active Substance: TEMOZOLOMIDE
     Indication: EPILEPSY
     Dosage: ?          OTHER FREQUENCY:QD X 5 DAYS;?
     Route: 048
  2. ACETAMINOPHEN 500MG [Concomitant]
     Active Substance: ACETAMINOPHEN
  3. TEMOZOLOMIDE. [Suspect]
     Active Substance: TEMOZOLOMIDE
     Indication: HEADACHE
     Dosage: ?          OTHER FREQUENCY:QD X 5 DAYS;?
     Route: 048
  4. OMEPRAZOLE 40MG [Concomitant]
     Active Substance: OMEPRAZOLE
  5. PROAMATINE 10MG [Concomitant]
  6. ONDANSETRON 4MG [Concomitant]
     Active Substance: ONDANSETRON
  7. DEXAMETHASONE 4MG [Concomitant]
     Active Substance: DEXAMETHASONE
  8. TRAZODONE [Concomitant]
     Active Substance: TRAZODONE HYDROCHLORIDE

REACTIONS (1)
  - Epilepsy [None]

NARRATIVE: CASE EVENT DATE: 20210601
